FAERS Safety Report 20176040 (Version 1)
Quarter: 2021Q4

REPORT INFORMATION
  Report Type: Spontaneous
  Country: US (occurrence: None)
  Receive Date: 20211213
  Receipt Date: 20211213
  Transmission Date: 20220303
  Serious: No
  Sender: FDA-Public Use
  Company Number: 2021A808524

PATIENT
  Age: 21444 Day
  Sex: Male
  Weight: 96.2 kg

DRUGS (2)
  1. SYMBICORT [Suspect]
     Active Substance: BUDESONIDE\FORMOTEROL FUMARATE DIHYDRATE
     Indication: Asthma
     Dosage: 160/4.5 UG, 2 PUFFS IN THE MORNING AND 2 PUFFS IN THE EVENING, TWO TIMES A DAY
     Route: 055
  2. LEVALBUTEROL SULFATE [Concomitant]

REACTIONS (5)
  - Discoloured vomit [Recovered/Resolved]
  - Abdominal discomfort [Not Recovered/Not Resolved]
  - Dyspnoea [Unknown]
  - Lung disorder [Unknown]
  - Product dose omission issue [Unknown]

NARRATIVE: CASE EVENT DATE: 20211114
